FAERS Safety Report 16540255 (Version 1)
Quarter: 2019Q3

REPORT INFORMATION
  Report Type: Spontaneous
  Country: US (occurrence: US)
  Receive Date: 20190706
  Receipt Date: 20190706
  Transmission Date: 20191004
  Serious: No
  Sender: FDA-Public Use
  Company Number: None

PATIENT
  Age: 74 Year
  Sex: Female
  Weight: 59.85 kg

DRUGS (8)
  1. VITAMIN D [Concomitant]
     Active Substance: VITAMIN D NOS
  2. COQ10 [Concomitant]
     Active Substance: UBIDECARENONE
  3. METHENAMINE HIPP 1 GM TAB SUBSTITUTED FOR HIPREX 1GM TABLET [Suspect]
     Active Substance: METHENAMINE HIPPURATE
     Indication: BLADDER DISORDER
     Dosage: ?          QUANTITY:1 TABLET(S);?
     Route: 048
     Dates: start: 20190626, end: 20190629
  4. MAGNESIUM [Concomitant]
     Active Substance: MAGNESIUM
  5. B COMPLEX WITH METAFOLIN [Concomitant]
  6. NATURE-THROID [Concomitant]
     Active Substance: THYROID, PORCINE
  7. ZINC. [Concomitant]
     Active Substance: ZINC
  8. PROBIOTICS [Concomitant]
     Active Substance: PROBIOTICS NOS

REACTIONS (8)
  - Headache [None]
  - Burning sensation [None]
  - Swelling face [None]
  - Nausea [None]
  - Choking sensation [None]
  - Tinnitus [None]
  - Myalgia [None]
  - Dizziness [None]

NARRATIVE: CASE EVENT DATE: 20190629
